FAERS Safety Report 7154354-6 (Version None)
Quarter: 2010Q4

REPORT INFORMATION
  Report Type: 
  Country: None (occurrence: None)
  Receive Date: 20101213
  Receipt Date: 20101203
  Transmission Date: 20110411
  Serious: Yes (Hospitalization)
  Sender: FDA-Public Use
  Company Number: DE-PFIZER INC-2010163589

PATIENT
  Age: 50 Year
  Sex: Female
  Weight: 65 kg

DRUGS (4)
  1. LYRICA [Suspect]
     Indication: NEUROPATHY PERIPHERAL
     Dosage: 25 MG DAILY
     Route: 048
  2. OMEPRAZOLE [Concomitant]
     Indication: REGURGITATION
     Dosage: 20MG DAILY
     Route: 048
  3. BISOPROLOL [Concomitant]
     Indication: HYPERTENSION
     Dosage: 5MG DAILY
     Route: 048
  4. NOVALGIN [Concomitant]
     Indication: PAIN
     Dosage: 500MG DAILY
     Route: 048

REACTIONS (3)
  - HEPATITIS ACUTE [None]
  - HEPATOTOXICITY [None]
  - LIVER INJURY [None]
